FAERS Safety Report 9107207 (Version 1)
Quarter: 2013Q1

REPORT INFORMATION
  Report Type: Spontaneous
  Country: CH (occurrence: CH)
  Receive Date: 20130221
  Receipt Date: 20130221
  Transmission Date: 20140127
  Serious: Yes (Hospitalization, Other)
  Sender: FDA-Public Use
  Company Number: CH-WATSON-2013-02896

PATIENT
  Age: 22 Year
  Sex: Male

DRUGS (3)
  1. ETOPOSIDE [Suspect]
     Indication: TESTIS CANCER
     Dosage: 2 CYCLES
     Route: 065
  2. CISPLATIN [Suspect]
     Indication: TESTIS CANCER
     Dosage: 2 CYCLES
     Route: 065
  3. BLEOMYCIN [Suspect]
     Indication: TESTIS CANCER
     Dosage: UNK, UNKNOWN
     Route: 065

REACTIONS (1)
  - Acute myeloid leukaemia [Not Recovered/Not Resolved]
